FAERS Safety Report 6704759-X (Version None)
Quarter: 2010Q2

REPORT INFORMATION
  Report Type: 
  Country: None (occurrence: None)
  Receive Date: 20100430
  Receipt Date: 20100308
  Transmission Date: 20101027
  Serious: No
  Sender: FDA-Public Use
  Company Number: US-BAUSCH-2010BL001291

PATIENT
  Sex: Female

DRUGS (1)
  1. ALREX [Suspect]
     Indication: EYE INFLAMMATION
     Route: 047
     Dates: start: 20100101, end: 20100201

REACTIONS (1)
  - DRUG INEFFECTIVE [None]
